FAERS Safety Report 6005073-0 (Version None)
Quarter: 2008Q4

REPORT INFORMATION
  Report Type: 
  Country: None (occurrence: None)
  Receive Date: 20081216
  Receipt Date: 20081209
  Transmission Date: 20090506
  Serious: Yes (Hospitalization)
  Sender: FDA-Public Use
  Company Number: PHHY2008CL31440

PATIENT
  Age: 72 Year
  Sex: Female

DRUGS (4)
  1. TAREG [Suspect]
     Indication: HYPERTENSION
     Dosage: 1 TABLET (80 MG) PER DAY
  2. ATORVASTATIN [Concomitant]
  3. GLUCOPHAGE [Concomitant]
  4. OMEPRAZOL ^ACYFABRIK^ [Concomitant]

REACTIONS (1)
  - HIP ARTHROPLASTY [None]
